FAERS Safety Report 5714323-7 (Version None)
Quarter: 2008Q3

REPORT INFORMATION
  Report Type: 
  Country: None (occurrence: None)
  Receive Date: 20080421
  Receipt Date: 20080417
  Transmission Date: 20090109
  Serious: Yes (Death, Hospitalization)
  Sender: FDA-Public Use
  Company Number: 2008SP007228

PATIENT
  Age: 68 Year
  Sex: Male
  Weight: 67 kg

DRUGS (11)
  1. TEMOZOLOMIDE [Suspect]
     Indication: GLIOBLASTOMA
     Dosage: 75MG/M2; PO;  200 MG/M2; QD; PO
     Route: 048
     Dates: start: 20080327, end: 20080331
  2. TEMOZOLOMIDE [Suspect]
     Indication: GLIOBLASTOMA
     Dosage: 75MG/M2; PO;  200 MG/M2; QD; PO
     Route: 048
     Dates: start: 20071126
  3. DIPYRONE TAB [Suspect]
     Indication: PAIN
     Dosage: 20 GTT;PRN
  4. HYDROCHLOROTHIAZIDE [Suspect]
     Indication: CARDIAC FAILURE
     Dosage: 25 MG; QD; PO
     Route: 048
  5. TORSEMIDE [Suspect]
     Indication: CARDIAC FAILURE
     Dosage: 10 MG; BID; PO;  10 MG; QD; PO
     Route: 048
     Dates: start: 20071211
  6. BISOPROLOL FUMARATE [Suspect]
     Indication: ATRIAL FIBRILLATION
     Dosage: 2.5 MG; QD;
  7. LISINOPRIL [Suspect]
     Indication: HYPERTENSION
     Dosage: 20 MG; QD ; PO
     Route: 048
  8. DEXAMETHASONE [Suspect]
     Indication: GLIOBLASTOMA
     Dosage: 2 MG; TID; PO;  2 MG; QD; PO
     Route: 048
  9. NEXIUM [Suspect]
     Indication: GASTRIC DISORDER
     Dosage: 40 MG; QD; PO
     Route: 048
  10. NEXIUM [Suspect]
     Indication: PROPHYLAXIS
     Dosage: 40 MG; QD; PO
     Route: 048
  11. FELODIPINE [Concomitant]

REACTIONS (4)
  - CARDIAC DISORDER [None]
  - DYSPNOEA EXERTIONAL [None]
  - RED BLOOD CELL COUNT DECREASED [None]
  - VENOUS INSUFFICIENCY [None]
